FAERS Safety Report 7558838-8 (Version None)
Quarter: 2011Q2

REPORT INFORMATION
  Report Type: 
  Country: None (occurrence: None)
  Receive Date: 20110621
  Receipt Date: 20110607
  Transmission Date: 20111010
  Serious: Yes (Life-Threatening, Hospitalization)
  Sender: FDA-Public Use
  Company Number: US-ROCHE-783693

PATIENT
  Age: 68 Year

DRUGS (3)
  1. BEVACIZUMAB [Suspect]
     Dosage: INTRAVENOUS OVER 30-90 MIN ON DAY ONE BEGINING WITH CYCLE 2.
     Route: 042
     Dates: start: 20100721
  2. CARBOPLATIN [Suspect]
     Dosage: AUC 6 IP OM DAY ONE.
     Route: 042
     Dates: start: 20100721
  3. PACLITAXEL [Suspect]
     Dosage: INTRAVENOUS  OVER ONE HOUR ON DAYS 1,8,15.
     Route: 042
     Dates: start: 20100721

REACTIONS (6)
  - MUCOSAL INFECTION [None]
  - HYPERTENSION [None]
  - PLATELET COUNT DECREASED [None]
  - CONJUNCTIVITIS INFECTIVE [None]
  - NEUTROPHIL COUNT DECREASED [None]
  - HAEMOGLOBIN DECREASED [None]
